FAERS Safety Report 6338951-3 (Version None)
Quarter: 2009Q3

REPORT INFORMATION
  Report Type: 
  Country: None (occurrence: None)
  Receive Date: 20090828
  Receipt Date: 20090420
  Transmission Date: 20100115
  Serious: Yes (Hospitalization)
  Sender: FDA-Public Use
  Company Number: 2009-01990

PATIENT
  Age: 25 Year
  Sex: Male
  Weight: 78.5 kg

DRUGS (5)
  1. INFED [Suspect]
     Indication: IRON DEFICIENCY ANAEMIA
     Dosage: 100 MG, OVER 2 HRS (USED 1 DOSE ONLY), INTRAVENOUS
     Route: 042
     Dates: start: 20090303, end: 20090303
  2. TPN [Concomitant]
  3. WARFARIN [Concomitant]
  4. BUDESONIDE [Concomitant]
  5. PREVACID [Concomitant]

REACTIONS (2)
  - BACTERAEMIA [None]
  - PYREXIA [None]
